FAERS Safety Report 13665984 (Version 2)
Quarter: 2017Q2

REPORT INFORMATION
  Report Type: Spontaneous
  Country: US (occurrence: US)
  Receive Date: 20170619
  Receipt Date: 20170619
  Transmission Date: 20170830
  Serious: Yes (Other)
  Sender: FDA-Public Use
  Company Number: US-BRISTOL-MYERS SQUIBB COMPANY-BMS-2017-052680

PATIENT

DRUGS (3)
  1. CARBOPLATIN. [Suspect]
     Active Substance: CARBOPLATIN
     Indication: LUNG NEOPLASM MALIGNANT
     Route: 065
  2. NIVOLUMAB [Suspect]
     Active Substance: NIVOLUMAB
     Indication: LUNG NEOPLASM MALIGNANT
     Route: 065
  3. PEMETREXED. [Concomitant]
     Active Substance: PEMETREXED
     Indication: LUNG NEOPLASM MALIGNANT
     Route: 065

REACTIONS (2)
  - Malignant neoplasm progression [Unknown]
  - Hepatic enzyme abnormal [Unknown]
